FAERS Safety Report 9378819 (Version 2)
Quarter: 2013Q3

REPORT INFORMATION
  Report Type: Spontaneous
  Country: US (occurrence: US)
  Receive Date: 20130702
  Receipt Date: 20130702
  Transmission Date: 20140515
  Serious: Yes (Hospitalization)
  Sender: FDA-Public Use
  Company Number: US-BAYER-2013-056890

PATIENT
  Age: 89 Year
  Sex: Male
  Weight: 82.99 kg

DRUGS (23)
  1. XARELTO [Suspect]
     Indication: CEREBROVASCULAR ACCIDENT PROPHYLAXIS
     Dosage: 20 MG, QD
     Route: 048
     Dates: start: 20130118, end: 20130202
  2. XARELTO [Suspect]
     Indication: ATRIAL FIBRILLATION
     Route: 048
     Dates: start: 20130221
  3. ACETYLSALICYLIC ACID({=100 MG) [Suspect]
     Indication: PRODUCT USED FOR UNKNOWN INDICATION
     Dosage: 81 MG, UNK
     Route: 065
     Dates: end: 20130201
  4. VITAMIN C [Concomitant]
     Route: 065
  5. VITAMIN D3 [Concomitant]
     Route: 065
  6. VITAMIN B12 [Concomitant]
     Dosage: 1000 ?G, UNK
     Route: 048
  7. EVENING PRIMROSE OIL [Concomitant]
     Route: 065
  8. FERROUS SULFATE [Concomitant]
     Dosage: 325 MG, UNK
     Route: 048
  9. FINASTERIDE [Concomitant]
     Dosage: 5 MG, UNK
     Route: 048
  10. FLAXSEED OIL [Concomitant]
     Dosage: 1000 MG, UNK
     Route: 048
  11. PREVACID [Concomitant]
     Dosage: 30 MG, BID
     Route: 048
  12. SYNTHROID [Concomitant]
     Dosage: 75 ?G, UNK
     Route: 048
  13. LOSARTAN [Concomitant]
     Dosage: 100 MG, UNK
     Route: 048
  14. MAG-OX [Concomitant]
     Dosage: 400 MG, UNK
     Route: 048
  15. NIACIN [Concomitant]
     Dosage: 500 MG, BID
     Route: 048
  16. OMEGA-3 [Concomitant]
     Dosage: 1200 MG, TID
     Route: 048
  17. PROPAFENONE [Concomitant]
     Dosage: 150 MG, UNK
     Route: 048
  18. SIMVASTATIN [Concomitant]
     Dosage: 20 MG, Q1HR
     Route: 048
  19. FLOMAX [TAMSULOSIN HYDROCHLORIDE] [Concomitant]
     Dosage: .4 MG, UNK
     Route: 048
  20. VITAMIN E [Concomitant]
     Route: 048
  21. UBIDECARENONE [Concomitant]
     Dosage: 300 MG, UNK
     Route: 048
  22. RYTHMOL [Concomitant]
     Dosage: 150 MG, UNK
     Route: 048
  23. PROTONIX [Concomitant]
     Dosage: 40 MG, UNK
     Route: 048

REACTIONS (10)
  - Gastritis erosive [Recovered/Resolved]
  - Haemoglobin decreased [Not Recovered/Not Resolved]
  - Upper gastrointestinal haemorrhage [Recovered/Resolved]
  - Dyspnoea exertional [Unknown]
  - Dizziness [Unknown]
  - Haematocrit decreased [None]
  - Gastric dysplasia [None]
  - Diverticulum intestinal haemorrhagic [None]
  - Platelet count decreased [None]
  - Dyspnoea [None]
